FAERS Safety Report 5973610-8 (Version None)
Quarter: 2008Q4

REPORT INFORMATION
  Report Type: 
  Country: None (occurrence: None)
  Receive Date: 20081201
  Receipt Date: 20081117
  Transmission Date: 20090506
  Serious: Yes (Hospitalization, Other)
  Sender: FDA-Public Use
  Company Number: US-ELI_LILLY_AND_COMPANY-US200811003702

PATIENT
  Sex: Female

DRUGS (2)
  1. CYMBALTA [Suspect]
     Dosage: 1 D/F, UNK
  2. ANTIARRHYTHMICS, CLASS I AND III [Concomitant]

REACTIONS (4)
  - AMMONIA INCREASED [None]
  - COMA [None]
  - HOSPITALISATION [None]
  - LIVER DISORDER [None]
